FAERS Safety Report 12684704 (Version 4)
Quarter: 2019Q4

REPORT INFORMATION
  Report Type: Spontaneous
  Country: US (occurrence: US)
  Receive Date: 20160825
  Receipt Date: 20191227
  Transmission Date: 20200122
  Serious: Yes (Death, Other)
  Sender: FDA-Public Use
  Company Number: US-PFIZER INC-2016401623

PATIENT
  Age: 86 Year
  Sex: Male

DRUGS (16)
  1. AMOX [Concomitant]
     Active Substance: UNSPECIFIED INGREDIENT
     Indication: ANTIBIOTIC THERAPY
     Dosage: UNK
     Dates: start: 20140805, end: 2014
  2. PREDNISONE. [Concomitant]
     Active Substance: PREDNISONE
     Indication: STEROID THERAPY
     Dosage: UNK
     Dates: start: 20140930, end: 2014
  3. DULERA [Concomitant]
     Active Substance: FORMOTEROL FUMARATE DIHYDRATE\MOMETASONE FUROATE
     Indication: ASTHMA
     Dosage: UNK
     Dates: start: 20140303, end: 20140915
  4. WARFARIN [Concomitant]
     Active Substance: WARFARIN
     Indication: ANTICOAGULANT THERAPY
     Dosage: UNK
     Dates: start: 20140628, end: 20141001
  5. AZITHROMYCIN ANHYDROUS. [Concomitant]
     Active Substance: AZITHROMYCIN ANHYDROUS
     Indication: ANTIBIOTIC THERAPY
     Dosage: UNK
     Dates: start: 20140902, end: 2014
  6. VIAGRA [Suspect]
     Active Substance: SILDENAFIL CITRATE
     Dosage: 100 MG, AS NEEDED
     Route: 048
     Dates: start: 20060603, end: 20131113
  7. DIGOX [Concomitant]
     Active Substance: DIGOXIN
     Indication: BLOOD PRESSURE ABNORMAL
     Dosage: UNK
     Dates: start: 20140102, end: 20141001
  8. COUMADIN [Concomitant]
     Active Substance: WARFARIN SODIUM
     Indication: ANTICOAGULANT THERAPY
     Dosage: UNK
     Dates: start: 20140102, end: 20140329
  9. METFORMIN [Concomitant]
     Active Substance: METFORMIN HYDROCHLORIDE
     Indication: DIABETES MELLITUS
     Dosage: UNK
     Dates: start: 20140630, end: 20140923
  10. SPIRIVA [Concomitant]
     Active Substance: TIOTROPIUM BROMIDE MONOHYDRATE
     Indication: CHRONIC OBSTRUCTIVE PULMONARY DISEASE
     Dosage: UNK
     Dates: start: 20140102, end: 20140923
  11. VIAGRA [Suspect]
     Active Substance: SILDENAFIL CITRATE
     Indication: ERECTILE DYSFUNCTION
     Dosage: UNK, REGULARLY
     Route: 048
     Dates: start: 200306, end: 201311
  12. MONTELUKAST [Concomitant]
     Active Substance: MONTELUKAST SODIUM
     Indication: ANTIINFLAMMATORY THERAPY
     Dosage: UNK
     Dates: start: 20140102, end: 20140923
  13. METOPROLOL. [Concomitant]
     Active Substance: METOPROLOL
     Indication: BLOOD PRESSURE ABNORMAL
     Dosage: UNK
     Dates: start: 20131205, end: 20140923
  14. COUMADIN [Concomitant]
     Active Substance: WARFARIN SODIUM
     Indication: ATRIAL FIBRILLATION
  15. LEVALBUTEROL. [Concomitant]
     Active Substance: LEVALBUTEROL
     Indication: ASTHMA
     Dosage: UNK
     Dates: start: 20140402, end: 20140628
  16. METHYLPREDNISOLONE. [Concomitant]
     Active Substance: METHYLPREDNISOLONE
     Indication: STEROID THERAPY
     Dosage: UNK
     Dates: start: 20140805, end: 2014

REACTIONS (2)
  - Cardio-respiratory arrest [Fatal]
  - Malignant melanoma stage IV [Fatal]

NARRATIVE: CASE EVENT DATE: 201407
